FAERS Safety Report 18194051 (Version 1)
Quarter: 2020Q3

REPORT INFORMATION
  Report Type: Spontaneous
  Country: GB (occurrence: GB)
  Receive Date: 20200825
  Receipt Date: 20200825
  Transmission Date: 20201103
  Serious: Yes (Hospitalization)
  Sender: FDA-Public Use
  Company Number: GB-JNJFOC-20200825020

PATIENT
  Age: 57 Year
  Sex: Female

DRUGS (20)
  1. REMICADE [Suspect]
     Active Substance: INFLIXIMAB
     Indication: PRODUCT USED FOR UNKNOWN INDICATION
     Route: 042
  2. OILATUM                            /00103901/ [Concomitant]
     Route: 065
  3. CITALOPRAM [Concomitant]
     Active Substance: CITALOPRAM HYDROBROMIDE
     Route: 065
  4. CALCIPOTRIOL [Concomitant]
     Active Substance: CALCIPOTRIENE
     Dosage: MORNING
     Route: 065
  5. ALENDRONIC ACID [Concomitant]
     Active Substance: ALENDRONIC ACID
     Route: 065
  6. DAKTACORT [Concomitant]
     Active Substance: HYDROCORTISONE\MICONAZOLE NITRATE
     Route: 065
  7. PARAFFIN WHITE [Concomitant]
     Dosage: 2?3 HOURLY, 50/50  WHITE SOFT
     Route: 065
  8. HYDROMOL                           /06335901/ [Concomitant]
     Active Substance: PARAFFIN\WAX, EMULSIFYING
     Dosage: ; AS REQUIRED
     Route: 065
  9. DERMOL                             /01330701/ [Concomitant]
     Dosage: ; AS REQUIRED, LOTION
     Route: 065
  10. ORAMORPH [Concomitant]
     Active Substance: MORPHINE SULFATE
     Dosage: 10MG/5ML; AS REQUIRED, LIQUID
     Route: 065
  11. FUROSEMIDE. [Concomitant]
     Active Substance: FUROSEMIDE
     Dosage: MORNING
     Route: 065
  12. CAPASAL [Concomitant]
     Route: 065
  13. ADCAL D3 [Concomitant]
     Active Substance: CALCIUM CARBONATE\CHOLECALCIFEROL
     Route: 065
  14. FOLIC ACID. [Concomitant]
     Active Substance: FOLIC ACID
     Route: 065
  15. BALNEUM PLUS                       /00995701/ [Concomitant]
     Route: 065
  16. CLENIL MODULITE [Concomitant]
     Active Substance: BECLOMETHASONE DIPROPIONATE
     Dosage: PUFFS
     Route: 065
  17. COCODAMOL [Concomitant]
     Active Substance: ACETAMINOPHEN\CODEINE PHOSPHATE
     Dosage: 30/500MG. 1?2 UP TO 4 TIMES A DAY; AS REQUIRED
     Route: 065
  18. SALBUTAMOL [Concomitant]
     Active Substance: ALBUTEROL
     Dosage: PUFFS, UP FOUR TIMES A DAY; AS REQUIRED
  19. DOVOBET [Concomitant]
     Active Substance: BETAMETHASONE\CALCIPOTRIENE
     Route: 065
  20. CHLORPHENAMINE [Concomitant]
     Active Substance: CHLORPHENIRAMINE MALEATE
     Dosage: 4?6 HOURLY; AS REQUIRED
     Route: 065

REACTIONS (2)
  - Tremor [Unknown]
  - Palpitations [Unknown]
